FAERS Safety Report 7984582-9 (Version None)
Quarter: 2011Q4

REPORT INFORMATION
  Report Type: 
  Country: None (occurrence: None)
  Receive Date: 20111216
  Receipt Date: 20111208
  Transmission Date: 20120403
  Serious: Yes (Hospitalization)
  Sender: FDA-Public Use
  Company Number: US-JNJFOC-20111002995

PATIENT
  Sex: Male
  Weight: 83 kg

DRUGS (15)
  1. LEVOTHYROXINE SODIUM [Concomitant]
     Route: 048
  2. NABUMETONE [Concomitant]
     Route: 048
  3. XARELTO [Suspect]
     Indication: ILL-DEFINED DISORDER
     Route: 048
     Dates: start: 20110914
  4. SIMVASTATIN [Concomitant]
     Route: 048
  5. IMDUR [Concomitant]
     Route: 048
  6. DICYCLOMINE [Concomitant]
     Route: 048
  7. AMINOPHYLLINE [Concomitant]
     Route: 048
  8. LORAZEPAM [Concomitant]
     Route: 048
  9. DRONABINOL [Concomitant]
     Route: 048
  10. LISINOPRIL [Concomitant]
     Route: 048
  11. ZOCOR [Concomitant]
     Route: 048
  12. CELEBREX [Concomitant]
     Route: 048
  13. LASIX [Concomitant]
     Route: 048
  14. METOPROLOL TARTRATE [Concomitant]
     Route: 048
  15. FOSAMAX [Concomitant]
     Route: 048

REACTIONS (3)
  - ANAEMIA [None]
  - DEEP VEIN THROMBOSIS [None]
  - OESOPHAGITIS [None]
